FAERS Safety Report 10896928 (Version 1)
Quarter: 2015Q1

REPORT INFORMATION
  Report Type: Spontaneous
  Country: DE (occurrence: DE)
  Receive Date: 20150309
  Receipt Date: 20150309
  Transmission Date: 20150721
  Serious: Yes (Other)
  Sender: FDA-Public Use
  Company Number: PHHY2015DE024349

PATIENT
  Age: 75 Year

DRUGS (3)
  1. KETOCONAZOLE. [Concomitant]
     Active Substance: KETOCONAZOLE
     Indication: HORMONE SUPPRESSION THERAPY
     Dosage: 400 MG, QD
     Route: 065
  2. OCTREOTIDE [Suspect]
     Active Substance: OCTREOTIDE
     Indication: HORMONE-REFRACTORY PROSTATE CANCER
     Dosage: UNK
     Route: 065
     Dates: start: 200611, end: 200703
  3. HIDROCORTISON [Concomitant]
     Active Substance: HYDROCORTISONE
     Indication: HORMONE SUPPRESSION THERAPY
     Dosage: 10 MG, QD
     Route: 065

REACTIONS (1)
  - Prostatic specific antigen increased [Unknown]
